FAERS Safety Report 10267156 (Version 1)
Quarter: 2014Q2

REPORT INFORMATION
  Report Type: Spontaneous
  Country: US (occurrence: US)
  Receive Date: 20140630
  Receipt Date: 20140630
  Transmission Date: 20141212
  Serious: No
  Sender: FDA-Public Use
  Company Number: US-JNJFOC-20140612853

PATIENT
  Age: 5 Decade
  Sex: Male

DRUGS (2)
  1. INVEGA SUSTENNA [Suspect]
     Indication: PRODUCT USED FOR UNKNOWN INDICATION
     Route: 030
     Dates: start: 2012
  2. DEPAKOTE [Concomitant]
     Route: 065

REACTIONS (5)
  - Delusion [Unknown]
  - Gynaecomastia [Unknown]
  - Unevaluable event [Unknown]
  - Social avoidant behaviour [Unknown]
  - Weight increased [Unknown]
